FAERS Safety Report 18430013 (Version 5)
Quarter: 2020Q4

REPORT INFORMATION
  Report Type: Spontaneous
  Country: US (occurrence: DZ)
  Receive Date: 20201026
  Receipt Date: 20201209
  Transmission Date: 20210114
  Serious: Yes (Death, Other)
  Sender: FDA-Public Use
  Company Number: DZ-BIOMARINAP-DZ-2020-132774

PATIENT
  Age: 9 Year
  Sex: Male
  Weight: 28 kg

DRUGS (1)
  1. ALDURAZYME [Suspect]
     Active Substance: LARONIDASE
     Indication: MUCOPOLYSACCHARIDOSIS I
     Dosage: 200 INTERNATIONAL UNIT/KILOGRAM, QOW
     Route: 041
     Dates: start: 20141123

REACTIONS (5)
  - Hernia obstructive [Fatal]
  - Hernial eventration [Fatal]
  - Somnolence [Unknown]
  - Inguinal hernia [Unknown]
  - Umbilical hernia [Unknown]

NARRATIVE: CASE EVENT DATE: 2017
